FAERS Safety Report 13169197 (Version 1)
Quarter: 2017Q1

REPORT INFORMATION
  Report Type: Report from Study
  Country: US (occurrence: US)
  Receive Date: 20170201
  Receipt Date: 20170201
  Transmission Date: 20170428
  Serious: Yes (Hospitalization)
  Sender: FDA-Public Use
  Company Number: US-ASTRAZENECA-2017SE08833

PATIENT
  Age: 66 Year
  Sex: Male
  Weight: 82 kg

DRUGS (10)
  1. OLAPARIB [Suspect]
     Active Substance: OLAPARIB
     Indication: PROSTATE CANCER
     Dosage: TWICE A DAY
     Route: 048
     Dates: start: 20161222, end: 20170123
  2. VITAMIN B [Concomitant]
     Active Substance: VITAMIN B
     Dates: start: 2015
  3. FOLIC ACID. [Concomitant]
     Active Substance: FOLIC ACID
     Dates: start: 2015
  4. VENLAFAXINE [Concomitant]
     Active Substance: VENLAFAXINE HYDROCHLORIDE
     Dates: start: 2015
  5. CALCIUM CARBONATE. [Concomitant]
     Active Substance: CALCIUM CARBONATE
     Dates: start: 2015
  6. MEDI4736 [Suspect]
     Active Substance: DURVALUMAB
     Indication: PROSTATE CANCER
     Dosage: ONCE A MONTH
     Route: 042
     Dates: start: 20161222, end: 20161222
  7. VITAMIN D [Concomitant]
     Active Substance: CHOLECALCIFEROL
     Dates: start: 2015
  8. MELATONIN [Concomitant]
     Active Substance: MELATONIN
     Dates: start: 2015
  9. GOSERELIN [Concomitant]
     Active Substance: GOSERELIN
     Dates: start: 2015
  10. OMEPRAZOLE. [Concomitant]
     Active Substance: OMEPRAZOLE
     Dates: start: 2016

REACTIONS (1)
  - Syncope [Unknown]

NARRATIVE: CASE EVENT DATE: 20170121
